FAERS Safety Report 23447561 (Version 1)
Quarter: 2024Q1

REPORT INFORMATION
  Report Type: Report from Study
  Country: MY (occurrence: None)
  Receive Date: 20240126
  Receipt Date: 20240126
  Transmission Date: 20240410
  Serious: Yes (Other)
  Sender: FDA-Public Use
  Company Number: 2024A015578

PATIENT
  Age: 19093 Day
  Sex: Female

DRUGS (1)
  1. LYNPARZA [Suspect]
     Active Substance: OLAPARIB
     Indication: Ovarian cancer
     Route: 048

REACTIONS (2)
  - Gastrointestinal disorder [Unknown]
  - Taste disorder [Unknown]

NARRATIVE: CASE EVENT DATE: 20240118
